FAERS Safety Report 24340381 (Version 1)
Quarter: 2024Q3

REPORT INFORMATION
  Report Type: Spontaneous
  Country: US (occurrence: US)
  Receive Date: 20240919
  Receipt Date: 20240919
  Transmission Date: 20241017
  Serious: Yes (Other)
  Sender: JOHNSON AND JOHNSON
  Company Number: US-JNJFOC-20240930227

PATIENT
  Age: 76 Year
  Sex: Male

DRUGS (3)
  1. MACITENTAN [Suspect]
     Active Substance: MACITENTAN
     Indication: Pulmonary hypertension
     Route: 048
  2. SILDENAFIL [Suspect]
     Active Substance: SILDENAFIL
     Indication: Pulmonary hypertension
     Route: 065
  3. OXYGEN [Concomitant]
     Active Substance: OXYGEN

REACTIONS (2)
  - Pneumonia [Unknown]
  - Therapeutic product effect incomplete [Unknown]
